FAERS Safety Report 23742931 (Version 5)
Quarter: 2024Q4

REPORT INFORMATION
  Report Type: Spontaneous
  Country: JP (occurrence: JP)
  Receive Date: 20240415
  Receipt Date: 20241227
  Transmission Date: 20250115
  Serious: Yes (Hospitalization, Other)
  Sender: PFIZER
  Company Number: JP-PFIZER INC-202400075740

PATIENT
  Age: 69 Year
  Sex: Female

DRUGS (1)
  1. ENBREL [Suspect]
     Active Substance: ETANERCEPT
     Indication: Rheumatoid arthritis
     Dosage: UNK
     Route: 058

REACTIONS (3)
  - Necrotising fasciitis streptococcal [Unknown]
  - Injection site infection [Unknown]
  - Adrenal insufficiency [Unknown]
